FAERS Safety Report 22318229 (Version 2)
Quarter: 2023Q2

REPORT INFORMATION
  Report Type: Spontaneous
  Country: BR (occurrence: BR)
  Receive Date: 20230515
  Receipt Date: 20230523
  Transmission Date: 20230722
  Serious: Yes (Death, Other)
  Sender: FDA-Public Use
  Company Number: BR-ABBVIE-4765722

PATIENT
  Age: 51 Year
  Sex: Female

DRUGS (2)
  1. VENETOCLAX [Suspect]
     Active Substance: VENETOCLAX
     Indication: Acute myeloid leukaemia
     Dosage: HALF THE DOSE 200 MILLIGRAM
     Route: 048
     Dates: start: 20220902, end: 20220928
  2. AZACITIDINE [Suspect]
     Active Substance: AZACITIDINE
     Indication: Acute myeloid leukaemia
     Route: 065

REACTIONS (6)
  - Central nervous system haemorrhage [Fatal]
  - Acute myeloid leukaemia [Fatal]
  - Bone marrow failure [Not Recovered/Not Resolved]
  - Extramedullary haemopoiesis [Not Recovered/Not Resolved]
  - Off label use [Unknown]
  - Infection [Fatal]
